FAERS Safety Report 8162511-5 (Version None)
Quarter: 2012Q1

REPORT INFORMATION
  Report Type: 
  Country: None (occurrence: None)
  Receive Date: 20120221
  Receipt Date: 20120210
  Transmission Date: 20120608
  Serious: Yes (Hospitalization, Other)
  Sender: FDA-Public Use
  Company Number: 2012SP007994

PATIENT
  Sex: Female

DRUGS (2)
  1. RIBAVIRIN [Suspect]
     Indication: HEPATITIS C
     Dates: start: 20110826, end: 20111224
  2. PEG-INTRON [Suspect]
     Indication: HEPATITIS C
     Dates: start: 20110826, end: 20111224

REACTIONS (10)
  - HEAD INJURY [None]
  - HYPOTENSION [None]
  - ABNORMAL BEHAVIOUR [None]
  - INSOMNIA [None]
  - FEELING ABNORMAL [None]
  - PNEUMONIA [None]
  - URINARY TRACT INFECTION [None]
  - FALL [None]
  - IDIOPATHIC PULMONARY FIBROSIS [None]
  - MENTAL IMPAIRMENT [None]
